FAERS Safety Report 8456893-4 (Version None)
Quarter: 2012Q2

REPORT INFORMATION
  Report Type: 
  Country: None (occurrence: None)
  Receive Date: 20120614
  Receipt Date: 20120612
  Transmission Date: 20120825
  Serious: Yes (Hospitalization, Other)
  Sender: FDA-Public Use
  Company Number: ADR-2011-11260

PATIENT
  Sex: Male

DRUGS (1)
  1. LIORESAL [Suspect]
     Indication: MUSCLE SPASTICITY
     Dosage: 774.5 MCG/DAY, INTRATHECAL
     Route: 037

REACTIONS (14)
  - AUTONOMIC DYSREFLEXIA [None]
  - CONVULSION [None]
  - RENAL FAILURE [None]
  - CONTUSION [None]
  - MUSCLE SPASTICITY [None]
  - PYREXIA [None]
  - INSOMNIA [None]
  - HYPOTONIA [None]
  - DEVICE MALFUNCTION [None]
  - CONSCIOUSNESS FLUCTUATING [None]
  - SELF-MEDICATION [None]
  - OVERDOSE [None]
  - BLOOD PRESSURE INCREASED [None]
  - COMPLICATION OF DEVICE REMOVAL [None]
